FAERS Safety Report 5192720-9 (Version None)
Quarter: 2006Q4

REPORT INFORMATION
  Report Type: 
  Country: None (occurrence: None)
  Receive Date: 20061228
  Receipt Date: 20061218
  Transmission Date: 20070319
  Serious: Yes (Disabling)
  Sender: FDA-Public Use
  Company Number: PHBS2006IT19679

PATIENT
  Age: 68 Year
  Sex: Male

DRUGS (1)
  1. AREDIA [Suspect]
     Indication: MULTIPLE MYELOMA
     Dosage: 90 MG, EVERY 1 MONTH
     Route: 042
     Dates: start: 20020301

REACTIONS (5)
  - BONE TRIMMING [None]
  - FISTULA [None]
  - OSTEONECROSIS [None]
  - PAIN [None]
  - WOUND DEBRIDEMENT [None]
